FAERS Safety Report 8581030-5 (Version None)
Quarter: 2012Q3

REPORT INFORMATION
  Report Type: 
  Country: None (occurrence: None)
  Receive Date: 20120809
  Receipt Date: 20120726
  Transmission Date: 20120928
  Serious: Yes (Hospitalization)
  Sender: FDA-Public Use
  Company Number: FR-CELGENEUS-056-21880-12032179

PATIENT
  Sex: Male
  Weight: 80 kg

DRUGS (8)
  1. DEXAMETHASONE [Suspect]
     Route: 065
     Dates: start: 20110809
  2. VALACYCLOVIR HYDROCHLORIDE [Concomitant]
     Indication: ANTI-INFECTIVE THERAPY
     Route: 065
  3. REVLIMID [Suspect]
     Route: 048
     Dates: start: 20110809
  4. DEXAMETHASONE [Suspect]
     Route: 065
     Dates: end: 20120217
  5. BORTEZOMIB [Suspect]
     Route: 065
     Dates: start: 20110809
  6. REVLIMID [Suspect]
     Route: 048
     Dates: end: 20120209
  7. BORTEZOMIB [Suspect]
     Route: 065
     Dates: end: 20120216
  8. BACTRIM [Concomitant]
     Indication: ANTI-INFECTIVE THERAPY
     Route: 065

REACTIONS (2)
  - SYSTEMIC INFLAMMATORY RESPONSE SYNDROME [None]
  - PYREXIA [None]
